FAERS Safety Report 23897687 (Version 1)
Quarter: 2024Q2

REPORT INFORMATION
  Report Type: Report from Study
  Country: CA (occurrence: CA)
  Receive Date: 20240524
  Receipt Date: 20240524
  Transmission Date: 20240716
  Serious: Yes (Other)
  Sender: FDA-Public Use
  Company Number: CA-ABBVIE-5766777

PATIENT
  Sex: Female

DRUGS (7)
  1. HUMIRA [Suspect]
     Active Substance: ADALIMUMAB
     Indication: Ankylosing spondylitis
     Dosage: FORM STRENGTH: 40 MILLIGRAM
     Route: 058
     Dates: start: 2019
  2. SUMATRIPTAN [Concomitant]
     Active Substance: SUMATRIPTAN
     Indication: Product used for unknown indication
     Dosage: FREQUENCY TEXT: ONCE, AS NEEDED
     Route: 048
  3. LIDOCAINE [Concomitant]
     Active Substance: LIDOCAINE
     Indication: Ingrowing nail
     Dosage: FORM STRENGTH: 1 PERCENT
     Route: 065
  4. DULOXETINE [Concomitant]
     Active Substance: DULOXETINE
     Indication: Product used for unknown indication
     Dosage: FREQUENCY TEXT: DAILY, DO NOT CRUSH OR CHEW.
     Route: 048
  5. CODEINE [Concomitant]
     Active Substance: CODEINE
     Indication: Product used for unknown indication
     Dosage: FREQUENCY TEXT: DAILY, AT BEDTIME
     Route: 048
  6. ACETAMINOPHEN [Concomitant]
     Active Substance: ACETAMINOPHEN
     Indication: Product used for unknown indication
     Dosage: FREQUENCY TEXT: DAILY, AT BEDTIME
     Route: 048
  7. CAFFEINE [Concomitant]
     Active Substance: CAFFEINE
     Indication: Product used for unknown indication
     Dosage: FREQUENCY TEXT: DAILY, AT BEDTIME
     Route: 048

REACTIONS (4)
  - Ingrowing nail [Unknown]
  - Peripheral swelling [Unknown]
  - Pain in extremity [Unknown]
  - Erythema [Unknown]
